FAERS Safety Report 21086867 (Version 1)
Quarter: 2022Q3

REPORT INFORMATION
  Report Type: Report from Study
  Country: IT (occurrence: IT)
  Receive Date: 20220715
  Receipt Date: 20220715
  Transmission Date: 20221026
  Serious: Yes (Other)
  Sender: FDA-Public Use
  Company Number: IT-JNJFOC-20220709522

PATIENT

DRUGS (4)
  1. DARATUMUMAB [Suspect]
     Active Substance: DARATUMUMAB
     Indication: Plasma cell myeloma refractory
     Route: 065
     Dates: start: 201801, end: 202012
  2. LENALIDOMIDE [Suspect]
     Active Substance: LENALIDOMIDE
     Indication: Plasma cell myeloma refractory
     Route: 065
     Dates: start: 201801, end: 202012
  3. LENALIDOMIDE [Suspect]
     Active Substance: LENALIDOMIDE
     Route: 065
  4. DEXAMETHASONE [Suspect]
     Active Substance: DEXAMETHASONE
     Indication: Plasma cell myeloma refractory
     Route: 065
     Dates: start: 201801, end: 202012

REACTIONS (8)
  - Neutropenia [Unknown]
  - Deep vein thrombosis [Unknown]
  - Musculoskeletal toxicity [Unknown]
  - Renal failure [Unknown]
  - Infection [Unknown]
  - Gastrointestinal toxicity [Unknown]
  - Rash [Unknown]
  - Fatigue [Unknown]
